FAERS Safety Report 10537937 (Version 1)
Quarter: 2014Q4

REPORT INFORMATION
  Report Type: Spontaneous
  Country: US (occurrence: None)
  Receive Date: 20141022
  Receipt Date: 20141022
  Transmission Date: 20150529
  Serious: Yes (Other)
  Sender: FDA-Public Use
  Company Number: None

PATIENT
  Age: 69 Year
  Sex: Male

DRUGS (1)
  1. LUPRON [Suspect]
     Active Substance: LEUPROLIDE ACETATE
     Indication: PROSTATE CANCER
     Dosage: LUPRON 22.5 MG EVERY 3 MONTH IM
     Route: 030
     Dates: start: 201310

REACTIONS (1)
  - Cerebrovascular accident [None]

NARRATIVE: CASE EVENT DATE: 20141008
